APPROVED DRUG PRODUCT: AMINOSYN II 3.5% M IN PLASTIC CONTAINER
Active Ingredient: AMINO ACIDS; MAGNESIUM ACETATE; POTASSIUM ACETATE; SODIUM CHLORIDE; SODIUM PHOSPHATE, DIBASIC, HEPTAHYDRATE
Strength: 3.5%;32MG/100ML;128MG/100ML;222MG/100ML;49MG/100ML
Dosage Form/Route: INJECTABLE;INJECTION
Application: N019493 | Product #001
Applicant: ABBOTT LABORATORIES PHARMACEUTICAL PRODUCTS DIV
Approved: Oct 16, 1986 | RLD: No | RS: No | Type: DISCN